FAERS Safety Report 20404333 (Version 2)
Quarter: 2022Q2

REPORT INFORMATION
  Report Type: Report from Study
  Country: FR (occurrence: FR)
  Receive Date: 20220131
  Receipt Date: 20220505
  Transmission Date: 20220721
  Serious: Yes (Other)
  Sender: FDA-Public Use
  Company Number: FR-INSMED, INC.-2021-09957-FR

PATIENT
  Sex: Female

DRUGS (2)
  1. ARIKAYCE [Suspect]
     Active Substance: AMIKACIN
     Indication: Mycobacterial infection
     Dosage: 590 MILLIGRAM
     Route: 055
     Dates: start: 202110
  2. BACTRIM [Suspect]
     Active Substance: SULFAMETHOXAZOLE\TRIMETHOPRIM
     Indication: Product used for unknown indication
     Route: 048

REACTIONS (13)
  - Asphyxia [Unknown]
  - Gastrooesophageal reflux disease [Unknown]
  - Pain [Unknown]
  - Sputum discoloured [Not Recovered/Not Resolved]
  - Sputum increased [Not Recovered/Not Resolved]
  - Productive cough [Recovering/Resolving]
  - Aphonia [Unknown]
  - Dysgeusia [Unknown]
  - Oropharyngeal discomfort [Unknown]
  - Dysphonia [Recovering/Resolving]
  - Cough [Not Recovered/Not Resolved]
  - Nausea [Unknown]
  - Dyspnoea [Not Recovered/Not Resolved]

NARRATIVE: CASE EVENT DATE: 20210101
